FAERS Safety Report 10103048 (Version 1)
Quarter: 2014Q2

REPORT INFORMATION
  Report Type: Spontaneous
  Country: US (occurrence: US)
  Receive Date: 20140424
  Receipt Date: 20140424
  Transmission Date: 20141212
  Serious: No
  Sender: FDA-Public Use
  Company Number: US-BRISTOL-MYERS SQUIBB COMPANY-20103875

PATIENT
  Age: 81 Year
  Sex: Male
  Weight: 91.61 kg

DRUGS (7)
  1. ELIQUIS [Suspect]
     Dates: start: 20131122
  2. WARFARIN [Suspect]
  3. AVODART [Concomitant]
     Dosage: QAM
  4. PROCARDIA XL [Concomitant]
     Dosage: QHS
  5. FISH OIL [Concomitant]
  6. VITAMIN D3 [Concomitant]
  7. CALCIUM [Concomitant]

REACTIONS (1)
  - Blood creatinine increased [Unknown]
